FAERS Safety Report 8842203 (Version 1)
Quarter: 2012Q4

REPORT INFORMATION
  Report Type: Spontaneous
  Country: US (occurrence: None)
  Receive Date: 20121015
  Receipt Date: 20121015
  Transmission Date: 20130627
  Serious: No
  Sender: FDA-Public Use
  Company Number: None

PATIENT
  Age: 78 Year
  Sex: Male
  Weight: 87.6 kg

DRUGS (2)
  1. LOSARTAN [Suspect]
     Indication: MYOCARDIAL INFARCT
     Route: 048
     Dates: start: 20120801, end: 20120828
  2. LOSARTAN [Suspect]
     Indication: HYPERTENSION
     Route: 048
     Dates: start: 20120801, end: 20120828

REACTIONS (5)
  - Anaphylactic reaction [None]
  - Rash [None]
  - Urticaria [None]
  - Pruritus [None]
  - Dyspnoea [None]
